FAERS Safety Report 14281312 (Version 1)
Quarter: 2017Q4

REPORT INFORMATION
  Report Type: Spontaneous
  Country: US (occurrence: None)
  Receive Date: 20171213
  Receipt Date: 20171213
  Transmission Date: 20180321
  Serious: Yes (Other)
  Sender: FDA-Public Use
  Company Number: None

PATIENT
  Age: 70 Year
  Sex: Female
  Weight: 57 kg

DRUGS (15)
  1. ALBUTEROL NEBULIZER SOLUTION [Concomitant]
     Active Substance: ALBUTEROL
  2. HYDROCORTISONE CREAM [Concomitant]
     Active Substance: HYDROCORTISONE
  3. DUO-NEB NEBULIZER SOLUTION [Concomitant]
  4. LEVETIRACETAM. [Concomitant]
     Active Substance: LEVETIRACETAM
  5. L-THYROXINE [Concomitant]
     Active Substance: LEVOTHYROXINE
  6. SORBITOL. [Concomitant]
     Active Substance: SORBITOL
  7. DENOSUMAB [Concomitant]
     Active Substance: DENOSUMAB
  8. LACOSAMIDE. [Concomitant]
     Active Substance: LACOSAMIDE
  9. RAMIPRIL. [Concomitant]
     Active Substance: RAMIPRIL
  10. VITAMIN C [Concomitant]
     Active Substance: ASCORBIC ACID
  11. METRONIDAZOLE TOPICAL CREAM 0.75% G+W LABORATORIES, INC. NEW JERSEY [Concomitant]
     Active Substance: METRONIDAZOLE
  12. DALBAVANCIN. [Suspect]
     Active Substance: DALBAVANCIN
     Indication: WOUND INFECTION STAPHYLOCOCCAL
     Route: 042
     Dates: start: 20171108
  13. CALCIUM CARBONATE. [Concomitant]
     Active Substance: CALCIUM CARBONATE
  14. CHOLECALCIFEROL [Concomitant]
     Active Substance: CHOLECALCIFEROL
  15. FLORASTOR [Concomitant]
     Active Substance: SACCHAROMYCES CEREVISIAE

REACTIONS (3)
  - Rectal haemorrhage [None]
  - Diarrhoea [None]
  - Vomiting [None]

NARRATIVE: CASE EVENT DATE: 20171108
